FAERS Safety Report 8335561-3 (Version None)
Quarter: 2012Q2

REPORT INFORMATION
  Report Type: 
  Country: None (occurrence: None)
  Receive Date: 20120503
  Receipt Date: 20120420
  Transmission Date: 20120825
  Serious: Yes (Death)
  Sender: FDA-Public Use
  Company Number: GB-MYLANLABS-2012S1008220

PATIENT
  Age: 63 Year
  Sex: Female

DRUGS (5)
  1. WARFARIN SODIUM [Suspect]
     Indication: DEEP VEIN THROMBOSIS
     Route: 048
     Dates: start: 20040901
  2. TEGRETOL [Concomitant]
     Indication: CONVULSION
     Route: 048
     Dates: start: 20020701
  3. FERROUS SULFATE TAB [Concomitant]
     Indication: ANAEMIA
     Route: 048
     Dates: start: 20060201
  4. OLANZAPINE [Concomitant]
     Indication: AGITATION
     Route: 048
     Dates: start: 20000601
  5. SIMVASTATIN [Concomitant]
     Indication: CEREBROVASCULAR ACCIDENT
     Route: 048
     Dates: start: 20010901

REACTIONS (4)
  - CARDIAC ARREST [None]
  - HAEMORRHAGE [None]
  - SHOCK [None]
  - INTESTINAL ISCHAEMIA [None]
